FAERS Safety Report 19472572 (Version 1)
Quarter: 2021Q2

REPORT INFORMATION
  Report Type: Report from Study
  Country: CO (occurrence: CO)
  Receive Date: 20210629
  Receipt Date: 20210629
  Transmission Date: 20210717
  Serious: Yes (Death)
  Sender: FDA-Public Use
  Company Number: CO-REGENERON PHARMACEUTICALS, INC.-2021-62668

PATIENT

DRUGS (1)
  1. EYLEA [Suspect]
     Active Substance: AFLIBERCEPT
     Indication: AGE-RELATED MACULAR DEGENERATION
     Dosage: 2 MG INTRAVITREAL MONTHLY FOR 3 MONTHS, THEN EVERY 2 MONTHS; TOTAL NUMBER OF DOSES UNK; LAST DOSE UN
     Route: 031
     Dates: start: 20140726

REACTIONS (1)
  - Death [Fatal]
